FAERS Safety Report 8371246-5 (Version None)
Quarter: 2012Q2

REPORT INFORMATION
  Report Type: 
  Country: None (occurrence: None)
  Receive Date: 20120518
  Receipt Date: 20120515
  Transmission Date: 20120825
  Serious: Yes (Hospitalization)
  Sender: FDA-Public Use
  Company Number: AT-AMGEN-AUTCT2012010175

PATIENT
  Age: 88 Year
  Sex: Female

DRUGS (11)
  1. RYTHMOL [Concomitant]
     Dosage: 150 MG, UNK
  2. CALCIUM [Concomitant]
     Indication: OSTEOPOROSIS POSTMENOPAUSAL
     Dosage: 120 MG, QD
     Route: 048
     Dates: start: 20050329
  3. PASPERTIN [Concomitant]
     Dosage: UNK UNK, PRN
  4. SERACTIL [Concomitant]
     Dosage: 300 MG, PRN
  5. TRYPTAL [Concomitant]
     Dosage: 300 MG, BID
  6. OXAZEPAM [Concomitant]
     Dosage: 15 MG, UNK
  7. VITAMIN D [Concomitant]
     Indication: OSTEOPOROSIS POSTMENOPAUSAL
     Dosage: 800 IU, QD
     Route: 048
     Dates: start: 20050329
  8. CITALOPRAM HYDROBROMIDE [Concomitant]
     Dosage: 20 MG, QD
     Route: 048
  9. DENOSUMAB [Suspect]
     Indication: OSTEOPOROSIS POSTMENOPAUSAL
     Dosage: 60 MG, Q6MO
     Route: 058
     Dates: start: 20080430
  10. LASIX [Concomitant]
     Dosage: 40 MG, UNK
  11. OMEPRAZOLE (PRISOLEC) [Concomitant]
     Dosage: 20 MG, UNK

REACTIONS (3)
  - URINARY RETENTION [None]
  - CIRCULATORY COLLAPSE [None]
  - PAIN IN JAW [None]
